FAERS Safety Report 7262152-8 (Version None)
Quarter: 2011Q1

REPORT INFORMATION
  Report Type: 
  Country: None (occurrence: None)
  Receive Date: 20110130
  Receipt Date: 20101209
  Transmission Date: 20110831
  Serious: No
  Sender: FDA-Public Use
  Company Number: US-ABBOTT-10P-163-0691549-00

PATIENT
  Sex: Male
  Weight: 87.168 kg

DRUGS (5)
  1. HUMIRA [Suspect]
     Dates: start: 20101205
  2. SULFASALAZINE [Concomitant]
     Indication: RHEUMATOID ARTHRITIS
  3. HUMIRA [Suspect]
     Indication: RHEUMATOID ARTHRITIS
     Dates: start: 20080101, end: 20100501
  4. CELEBREX [Concomitant]
     Indication: RHEUMATOID ARTHRITIS
  5. LIPITOR [Concomitant]
     Indication: BLOOD CHOLESTEROL INCREASED

REACTIONS (2)
  - HERPES ZOSTER [None]
  - ARTHRITIS [None]
